FAERS Safety Report 26102630 (Version 1)
Quarter: 2025Q4

REPORT INFORMATION
  Report Type: Spontaneous
  Country: CA (occurrence: CA)
  Receive Date: 20251128
  Receipt Date: 20251128
  Transmission Date: 20260117
  Serious: Yes (Hospitalization, Other)
  Sender: NOVARTIS
  Company Number: CA-002147023-NVSC2025CA182422

PATIENT
  Age: 79 Year
  Sex: Male

DRUGS (13)
  1. VALSARTAN [Suspect]
     Active Substance: VALSARTAN
     Indication: Product used for unknown indication
     Dosage: 160 MG
     Route: 048
  2. VALSARTAN [Suspect]
     Active Substance: VALSARTAN
     Dosage: 60 MG
     Route: 048
  3. FLOMAX [Suspect]
     Active Substance: TAMSULOSIN HYDROCHLORIDE
     Indication: Dysuria
     Dosage: 0.8 MG, Q24H (SUSTAINED-RELEASE)
     Route: 048
  4. GOSERELIN [Suspect]
     Active Substance: GOSERELIN
     Indication: Product used for unknown indication
     Dosage: 10.8 MG (1 EVERY 12 WEEKS)
     Route: 058
  5. GOSERELIN [Suspect]
     Active Substance: GOSERELIN
     Dosage: 10.8 MG (1 EVERY 12 WEEKS)
     Route: 058
  6. GOSERELIN [Suspect]
     Active Substance: GOSERELIN
     Dosage: 10.8 MG (1 EVERY 12 WEEKS)
     Route: 058
  7. GOSERELIN [Suspect]
     Active Substance: GOSERELIN
     Dosage: 10.8 MG (1 EVERY 12 WEEKS)
     Route: 058
  8. GOSERELIN [Suspect]
     Active Substance: GOSERELIN
     Dosage: UNK (SUSPENSION FOR INJECTION IN PRE-FILLED SYRINGE)
     Route: 065
  9. BICALUTAMIDE [Concomitant]
     Active Substance: BICALUTAMIDE
     Indication: Product used for unknown indication
     Dosage: UNK
     Route: 065
  10. CALCIUM CARBONATE [Concomitant]
     Active Substance: CALCIUM CARBONATE
     Indication: Product used for unknown indication
     Dosage: UNK
     Route: 065
  11. CYANOCOBALAMIN [Concomitant]
     Active Substance: CYANOCOBALAMIN
     Indication: Product used for unknown indication
     Dosage: UNK
     Route: 065
  12. TRAZODONE [Concomitant]
     Active Substance: TRAZODONE HYDROCHLORIDE
     Indication: Product used for unknown indication
     Dosage: UNK
     Route: 065
  13. VITAMIN C [Concomitant]
     Active Substance: ASCORBIC ACID
     Indication: Product used for unknown indication
     Dosage: UNK
     Route: 065

REACTIONS (7)
  - Asthenia [Not Recovered/Not Resolved]
  - Haemochromatosis [Not Recovered/Not Resolved]
  - Syncope [Not Recovered/Not Resolved]
  - Haemoglobin decreased [Not Recovered/Not Resolved]
  - Hypertension [Not Recovered/Not Resolved]
  - Hypotension [Not Recovered/Not Resolved]
  - Pallor [Not Recovered/Not Resolved]
